FAERS Safety Report 14493064 (Version 1)
Quarter: 2018Q1

REPORT INFORMATION
  Report Type: Spontaneous
  Country: US (occurrence: US)
  Receive Date: 20180206
  Receipt Date: 20180206
  Transmission Date: 20180509
  Serious: No
  Sender: FDA-Public Use
  Company Number: None

PATIENT
  Age: 68 Year
  Sex: Female
  Weight: 59.87 kg

DRUGS (17)
  1. CRANBERRY PILLS [Concomitant]
  2. CHLORTHALDONE [Concomitant]
  3. XANAX [Concomitant]
     Active Substance: ALPRAZOLAM
  4. ASPIRIN. [Concomitant]
     Active Substance: ASPIRIN
  5. VITAMIN B12 [Concomitant]
     Active Substance: CYANOCOBALAMIN
  6. CIPRO [Suspect]
     Active Substance: CIPROFLOXACIN HYDROCHLORIDE
     Indication: URINARY TRACT INFECTION
     Route: 048
     Dates: start: 20171009, end: 20171110
  7. TYLENOL ARTHRITIS PAIN [Concomitant]
     Active Substance: ACETAMINOPHEN
  8. FISH OIL [Concomitant]
     Active Substance: FISH OIL
  9. VITAMIN D3 [Concomitant]
     Active Substance: CHOLECALCIFEROL
  10. BACTRIUM BID [Concomitant]
  11. NITRO [Concomitant]
     Active Substance: NITROGLYCERIN
  12. POTASSIUM [Concomitant]
     Active Substance: POTASSIUM
  13. RANITIDINE. [Suspect]
     Active Substance: RANITIDINE
  14. COREG [Concomitant]
     Active Substance: CARVEDILOL
  15. PLAVIX [Concomitant]
     Active Substance: CLOPIDOGREL BISULFATE
  16. BENAZEPRIL [Concomitant]
     Active Substance: BENAZEPRIL HYDROCHLORIDE
  17. ZOCOR [Concomitant]
     Active Substance: SIMVASTATIN

REACTIONS (4)
  - Bursitis [None]
  - Pain in extremity [None]
  - Arthralgia [None]
  - Therapy cessation [None]

NARRATIVE: CASE EVENT DATE: 20171012
